FAERS Safety Report 5326333-2 (Version None)
Quarter: 2007Q2

REPORT INFORMATION
  Report Type: 
  Country: None (occurrence: None)
  Receive Date: 20070516
  Receipt Date: 20070515
  Transmission Date: 20071010
  Serious: Yes (Life-Threatening, Hospitalization, Disabling, Other)
  Sender: FDA-Public Use
  Company Number: A0643219A

PATIENT
  Age: 26 Year
  Sex: Female
  Weight: 61.4 kg

DRUGS (3)
  1. LAMICTAL [Suspect]
     Indication: BIPOLAR DISORDER
     Route: 048
     Dates: start: 20061219
  2. PENICILLIN [Suspect]
     Route: 065
  3. TRAZODONE HCL [Concomitant]
     Indication: INSOMNIA
     Dosage: 100MG AT NIGHT
     Route: 048
     Dates: start: 20060101

REACTIONS (9)
  - ASTHENIA [None]
  - DRUG ADMINISTRATION ERROR [None]
  - DRUG HYPERSENSITIVITY [None]
  - DYSPNOEA [None]
  - MALAISE [None]
  - PHARYNGITIS STREPTOCOCCAL [None]
  - PHARYNGOLARYNGEAL PAIN [None]
  - STEVENS-JOHNSON SYNDROME [None]
  - TOXIC EPIDERMAL NECROLYSIS [None]
